FAERS Safety Report 14069342 (Version 4)
Quarter: 2017Q4

REPORT INFORMATION
  Report Type: Spontaneous
  Country: GB (occurrence: GB)
  Receive Date: 20171010
  Receipt Date: 20171222
  Transmission Date: 20180321
  Serious: Yes (Life-Threatening, Disabling, Other)
  Sender: FDA-Public Use
  Company Number: GB-TEVA-812004ACC

PATIENT
  Age: 67 Year
  Sex: Male
  Weight: 81.3 kg

DRUGS (9)
  1. BISOPROLOL [Concomitant]
     Active Substance: BISOPROLOL
     Indication: MYOCARDIAL ISCHAEMIA
     Dosage: 80 MILLIGRAM DAILY;
     Route: 048
  2. GLICLAZIDE [Concomitant]
     Active Substance: GLICLAZIDE
     Indication: DIABETES MELLITUS
  3. SIMVASTATIN. [Interacting]
     Active Substance: SIMVASTATIN
     Indication: HYPERCHOLESTEROLAEMIA
     Dosage: 80 MILLIGRAM DAILY;
     Route: 048
     Dates: start: 201705
  4. SIMVASTATIN. [Interacting]
     Active Substance: SIMVASTATIN
     Dates: start: 19990101
  5. BRILIQUE [Interacting]
     Active Substance: TICAGRELOR
     Indication: STENT PLACEMENT
     Dosage: 180 MILLIGRAM DAILY;
     Route: 048
     Dates: start: 20170125, end: 201705
  6. BRILIQUE [Interacting]
     Active Substance: TICAGRELOR
     Indication: MYOCARDIAL ISCHAEMIA
  7. OMEPRAZOLE. [Concomitant]
     Active Substance: OMEPRAZOLE
     Indication: DYSPEPSIA
  8. SILDENAFIL. [Concomitant]
     Active Substance: SILDENAFIL
     Indication: ERECTILE DYSFUNCTION
  9. SIMVASTATIN. [Suspect]
     Active Substance: SIMVASTATIN
     Indication: MYOCARDIAL ISCHAEMIA
     Route: 048
     Dates: start: 201701, end: 201705

REACTIONS (11)
  - Abnormal loss of weight [Unknown]
  - Anaemia [Unknown]
  - Myelofibrosis [Not Recovered/Not Resolved]
  - Drug interaction [Unknown]
  - White blood cell count increased [Recovering/Resolving]
  - Dyspnoea [Unknown]
  - Haemoglobin decreased [Unknown]
  - Hyperhidrosis [Unknown]
  - Malaise [Unknown]
  - Splenomegaly [Recovering/Resolving]
  - Overdose [Unknown]

NARRATIVE: CASE EVENT DATE: 201701
